FAERS Safety Report 4809496-4 (Version None)
Quarter: 2005Q4

REPORT INFORMATION
  Report Type: 
  Country: None (occurrence: None)
  Receive Date: 20051025
  Receipt Date: 20050928
  Transmission Date: 20060501
  Serious: Yes (Hospitalization)
  Sender: FDA-Public Use
  Company Number: US-MERCK-0509USA04964

PATIENT
  Age: 75 Year
  Sex: Male
  Weight: 73 kg

DRUGS (2)
  1. VIOXX [Suspect]
     Indication: OSTEOARTHRITIS
     Route: 048
     Dates: start: 20000401, end: 20040930
  2. VIOXX [Suspect]
     Route: 048
     Dates: start: 20000401, end: 20040930

REACTIONS (2)
  - CEREBROVASCULAR ACCIDENT [None]
  - SYNCOPE [None]
